FAERS Safety Report 14546832 (Version 3)
Quarter: 2018Q2

REPORT INFORMATION
  Report Type: Report from Study
  Country: CA (occurrence: CA)
  Receive Date: 20180219
  Receipt Date: 20180620
  Transmission Date: 20180711
  Serious: Yes (Other)
  Sender: FDA-Public Use
  Company Number: CA-BRISTOL-MYERS SQUIBB COMPANY-BMS-2017-033125

PATIENT
  Age: 57 Year
  Sex: Female

DRUGS (1)
  1. ABATACEPT [Suspect]
     Active Substance: ABATACEPT
     Indication: RHEUMATOID ARTHRITIS
     Dosage: 750 MG, Q4WK
     Route: 042
     Dates: start: 20110811

REACTIONS (10)
  - Influenza [Recovered/Resolved]
  - Post procedural complication [Unknown]
  - Infusion site haemorrhage [Recovered/Resolved]
  - Rheumatoid arthritis [Not Recovered/Not Resolved]
  - Joint swelling [Recovered/Resolved]
  - Tooth disorder [Unknown]
  - Infection [Unknown]
  - Oral disorder [Unknown]
  - Infusion site pain [Recovered/Resolved]
  - Alveolar osteitis [Unknown]

NARRATIVE: CASE EVENT DATE: 20170322
